FAERS Safety Report 6679332-2 (Version None)
Quarter: 2010Q2

REPORT INFORMATION
  Report Type: 
  Country: None (occurrence: None)
  Receive Date: 20100408
  Receipt Date: 20090824
  Transmission Date: 20101027
  Serious: No
  Sender: FDA-Public Use
  Company Number: 2009-00517

PATIENT
  Age: 65 Year
  Sex: Male
  Weight: 81.6475 kg

DRUGS (2)
  1. ZICAM COLD REMEDY ORAL MIST [Suspect]
     Dosage: BID 2 DOSES
     Dates: start: 20090812, end: 20090812
  2. COUMADIN [Concomitant]

REACTIONS (1)
  - AGEUSIA [None]
